FAERS Safety Report 5608189-3 (Version None)
Quarter: 2008Q1

REPORT INFORMATION
  Report Type: 
  Country: None (occurrence: None)
  Receive Date: 20080130
  Receipt Date: 20080118
  Transmission Date: 20080703
  Serious: Yes (Hospitalization)
  Sender: FDA-Public Use
  Company Number: GB-ROCHE-542283

PATIENT
  Age: 52 Year
  Sex: Female
  Weight: 184.2 kg

DRUGS (4)
  1. ORLISTAT [Suspect]
     Indication: OBESITY
     Route: 048
     Dates: start: 20070818, end: 20071123
  2. DOXAZOSIN [Concomitant]
     Indication: HYPERTENSION
     Route: 048
  3. LOSARTAN POTASSIUM [Concomitant]
     Indication: HYPERTENSION
     Route: 048
  4. DAPSONE [Concomitant]
     Route: 048

REACTIONS (1)
  - GENERALISED OEDEMA [None]
